FAERS Safety Report 14536776 (Version 1)
Quarter: 2018Q1

REPORT INFORMATION
  Report Type: Spontaneous
  Country: US (occurrence: US)
  Receive Date: 20180215
  Receipt Date: 20180215
  Transmission Date: 20180509
  Serious: Yes (Hospitalization)
  Sender: FDA-Public Use
  Company Number: None

PATIENT
  Age: 68 Year
  Sex: Female
  Weight: 104.3 kg

DRUGS (12)
  1. TRAMDOL HYDROCHLORIDE [Concomitant]
     Active Substance: TRAMADOL HYDROCHLORIDE
  2. LASIX [Concomitant]
     Active Substance: FUROSEMIDE
  3. K-DUR [Concomitant]
     Active Substance: POTASSIUM CHLORIDE
  4. NORVASC [Concomitant]
     Active Substance: AMLODIPINE BESYLATE
  5. LIPITOR [Concomitant]
     Active Substance: ATORVASTATIN CALCIUM
  6. PROTONIX [Concomitant]
     Active Substance: PANTOPRAZOLE SODIUM
  7. HUMULIN N [Suspect]
     Active Substance: INSULIN HUMAN
     Indication: TYPE 2 DIABETES MELLITUS
     Dosage: DATES OF USE - CHRONIC?DOSE - 45 UNITS
     Route: 058
  8. ECOTRIN [Concomitant]
     Active Substance: ASPIRIN
  9. PLAVIX [Concomitant]
     Active Substance: CLOPIDOGREL BISULFATE
  10. APAP [Concomitant]
     Active Substance: ACETAMINOPHEN
  11. HYZAAR [Concomitant]
     Active Substance: HYDROCHLOROTHIAZIDE\LOSARTAN POTASSIUM
  12. ATARAX [Concomitant]
     Active Substance: HYDROXYZINE HYDROCHLORIDE

REACTIONS (5)
  - Hypophagia [None]
  - Renal impairment [None]
  - Hypoglycaemia [None]
  - Decreased appetite [None]
  - Therapy cessation [None]

NARRATIVE: CASE EVENT DATE: 20170514
